FAERS Safety Report 9706240 (Version 2)
Quarter: 2013Q4

REPORT INFORMATION
  Report Type: Spontaneous
  Country: IT (occurrence: IT)
  Receive Date: 20131125
  Receipt Date: 20131125
  Transmission Date: 20140711
  Serious: Yes (Life-Threatening)
  Sender: FDA-Public Use
  Company Number: IT-ROCHE-1284071

PATIENT
  Age: 69 Year
  Sex: Female

DRUGS (1)
  1. TORADOL [Suspect]
     Indication: ARTHRALGIA
     Dosage: FORM STREANGTH: 30 MG/ML
     Route: 030
     Dates: start: 20130922, end: 20130922

REACTIONS (5)
  - Anaphylactic shock [Recovered/Resolved]
  - Angina pectoris [Recovered/Resolved]
  - Respiratory failure [Recovered/Resolved]
  - Hypotension [Recovered/Resolved]
  - Urticaria [Recovered/Resolved]
